FAERS Safety Report 4901007-8 (Version None)
Quarter: 2006Q1

REPORT INFORMATION
  Report Type: 
  Country: None (occurrence: None)
  Receive Date: 20060203
  Receipt Date: 20051005
  Transmission Date: 20060701
  Serious: Yes (Other)
  Sender: FDA-Public Use
  Company Number: US-MERCK-0602USA00339

PATIENT
  Sex: Female

DRUGS (1)
  1. VIOXX [Suspect]
     Route: 048

REACTIONS (8)
  - AMNESIA [None]
  - ASTHENIA [None]
  - BLINDNESS [None]
  - CEREBROVASCULAR ACCIDENT [None]
  - CONFUSIONAL STATE [None]
  - DISORIENTATION [None]
  - HYPERTENSION [None]
  - HYPOAESTHESIA [None]
